FAERS Safety Report 8717943 (Version 2)
Quarter: 2017Q3

REPORT INFORMATION
  Report Type: Spontaneous
  Country: US (occurrence: US)
  Receive Date: 20120810
  Receipt Date: 20170928
  Transmission Date: 20171128
  Serious: Yes (Hospitalization, Other)
  Sender: FDA-Public Use
  Company Number: US-ROCHE-1099404

PATIENT
  Age: 77 Year
  Sex: Female

DRUGS (3)
  1. FOSAMAX [Suspect]
     Active Substance: ALENDRONATE SODIUM
     Indication: OSTEOPOROSIS
     Route: 048
     Dates: start: 2000, end: 200606
  2. BONIVA [Suspect]
     Active Substance: IBANDRONATE SODIUM
     Indication: OSTEOPOROSIS
     Route: 048
     Dates: start: 200802, end: 2011
  3. ACTONEL [Suspect]
     Active Substance: RISEDRONATE SODIUM
     Indication: OSTEOPOROSIS
     Route: 065
     Dates: start: 200606, end: 200802

REACTIONS (5)
  - Low turnover osteopathy [Unknown]
  - Anxiety [Unknown]
  - Bone disorder [Unknown]
  - Femur fracture [Unknown]
  - Femur fracture [Unknown]

NARRATIVE: CASE EVENT DATE: 20100724
